FAERS Safety Report 5514366-2 (Version None)
Quarter: 2007Q4

REPORT INFORMATION
  Report Type: 
  Country: None (occurrence: None)
  Receive Date: 20071113
  Receipt Date: 20070426
  Transmission Date: 20080405
  Serious: No
  Sender: FDA-Public Use
  Company Number: A0648898A

PATIENT
  Age: 63 Year
  Sex: Female

DRUGS (4)
  1. COREG [Suspect]
     Dosage: 3.125MG PER DAY
     Route: 048
     Dates: start: 20070301
  2. DIGITEK [Suspect]
     Dates: start: 20070401
  3. FUROSEMIDE [Suspect]
     Dates: start: 20070401
  4. KLOR-CON [Suspect]
     Dates: start: 20070401

REACTIONS (2)
  - ABDOMINAL PAIN UPPER [None]
  - STOMACH DISCOMFORT [None]
